FAERS Safety Report 21558031 (Version 1)
Quarter: 2022Q4

REPORT INFORMATION
  Report Type: Spontaneous
  Country: IT (occurrence: IT)
  Receive Date: 20221107
  Receipt Date: 20221107
  Transmission Date: 20230112
  Serious: Yes (Hospitalization)
  Sender: FDA-Public Use
  Company Number: None

PATIENT
  Age: 76 Year
  Sex: Female

DRUGS (2)
  1. OXALIPLATIN [Suspect]
     Active Substance: OXALIPLATIN
     Indication: Adenocarcinoma of colon
     Dosage: UNK ((OXALIPLATINO MG 70 PREPARTATO CON OXALIPLATINO SANDOX 200 MG 5MG/ML) (UTILIZZATA SACCA DI OXAL
     Route: 042
     Dates: start: 20221012
  2. ESOMEPRAZOLE [Concomitant]
     Active Substance: ESOMEPRAZOLE
     Indication: Prophylaxis
     Dosage: 20 MG, 1 COMPRESSA AL GIORNO (ASSUNTA ALLE ORE 8 DEL MATTINO)
     Route: 048

REACTIONS (4)
  - Syncope [Recovered/Resolved]
  - Dermatitis allergic [Recovered/Resolved]
  - Paraesthesia oral [Recovered/Resolved]
  - Anaphylactic shock [Recovered/Resolved]

NARRATIVE: CASE EVENT DATE: 20221012
